FAERS Safety Report 7891689-3 (Version None)
Quarter: 2011Q4

REPORT INFORMATION
  Report Type: 
  Country: None (occurrence: None)
  Receive Date: 20111103
  Receipt Date: 20110809
  Transmission Date: 20120403
  Serious: No
  Sender: FDA-Public Use
  Company Number: US-AMGEN-USASP2011040379

PATIENT
  Sex: Female

DRUGS (8)
  1. ENBREL [Suspect]
     Indication: RHEUMATOID ARTHRITIS
     Dosage: 50 MG, QWK
     Route: 058
     Dates: start: 20110701
  2. SAVELLA [Concomitant]
  3. PLAQUENIL [Concomitant]
  4. DAYPRO [Concomitant]
  5. VITAMIN D [Concomitant]
  6. FLEXERIL [Concomitant]
  7. IBUPROFEN [Concomitant]
  8. ASCORBIC ACID [Concomitant]

REACTIONS (5)
  - SWELLING [None]
  - DIZZINESS [None]
  - PRURITUS [None]
  - CONTUSION [None]
  - RASH [None]
